FAERS Safety Report 9372572 (Version 1)
Quarter: 2013Q2

REPORT INFORMATION
  Report Type: Spontaneous
  Country: US (occurrence: US)
  Receive Date: 20130627
  Receipt Date: 20130627
  Transmission Date: 20140414
  Serious: No
  Sender: FDA-Public Use
  Company Number: US-PFIZER INC-2013187687

PATIENT
  Sex: Female
  Weight: 100 kg

DRUGS (2)
  1. ZYVOX [Suspect]
     Indication: SEPSIS
     Dosage: UNK
     Route: 042
  2. ZYVOX [Suspect]
     Indication: URINARY TRACT INFECTION

REACTIONS (5)
  - Extravasation [Not Recovered/Not Resolved]
  - Local swelling [Not Recovered/Not Resolved]
  - Local swelling [Not Recovered/Not Resolved]
  - Pruritus [Not Recovered/Not Resolved]
  - Inflammation [Not Recovered/Not Resolved]
